FAERS Safety Report 25273148 (Version 1)
Quarter: 2025Q2

REPORT INFORMATION
  Report Type: Spontaneous
  Country: US (occurrence: None)
  Receive Date: 20250505
  Receipt Date: 20250505
  Transmission Date: 20250716
  Serious: Yes (Other)
  Sender: FDA-CTU
  Company Number: None

PATIENT
  Age: 66 Year
  Sex: Female

DRUGS (1)
  1. NUPLAZID [Suspect]
     Active Substance: PIMAVANSERIN TARTRATE

REACTIONS (8)
  - Insomnia [None]
  - Chest discomfort [None]
  - Chest pain [None]
  - Feeling abnormal [None]
  - Bronchitis [None]
  - Nausea [None]
  - Pulmonary oedema [None]
  - Pain [None]

NARRATIVE: CASE EVENT DATE: 20250122
